FAERS Safety Report 8694045 (Version 2)
Quarter: 2013Q1

REPORT INFORMATION
  Report Type: Spontaneous
  Country: IT (occurrence: IT)
  Receive Date: 20120731
  Receipt Date: 20130208
  Transmission Date: 20140127
  Serious: Yes (Hospitalization)
  Sender: FDA-Public Use
  Company Number: IT-SANOFI-AVENTIS-2012SA052233

PATIENT
  Age: 25 Year
  Sex: Male

DRUGS (4)
  1. ALPRAZOLAM [Suspect]
     Indication: INTENTIONAL SELF-INJURY
     Dosage: 15 TABS
     Route: 048
     Dates: start: 20120517, end: 20120517
  2. SERTRALINE HYDROCHLORIDE [Suspect]
     Indication: INTENTIONAL SELF-INJURY
     Dosage: 60 TABS
     Route: 048
     Dates: start: 20120517, end: 20120517
  3. STILNOX [Suspect]
     Indication: INTENTIONAL SELF-INJURY
     Dosage: 4 OR 5 TABS
     Route: 048
     Dates: start: 20120517, end: 20120517
  4. TESTOSTERONE [Suspect]
     Indication: PRODUCT USED FOR UNKNOWN INDICATION
     Route: 065

REACTIONS (3)
  - Vomiting [Not Recovered/Not Resolved]
  - Intentional overdose [Unknown]
  - Intentional self-injury [Not Recovered/Not Resolved]
